FAERS Safety Report 15075029 (Version 2)
Quarter: 2023Q4

REPORT INFORMATION
  Report Type: Spontaneous
  Country: US (occurrence: US)
  Receive Date: 20180627
  Receipt Date: 20231109
  Transmission Date: 20240110
  Serious: No
  Sender: FDA-Public Use
  Company Number: US-SAOL THERAPEUTICS-2017SAO01650

PATIENT
  Age: 30 Year
  Sex: Male

DRUGS (2)
  1. LIORESAL [Suspect]
     Active Substance: BACLOFEN
     Indication: Muscle spasticity
     Dosage: 1285.5 ?G, \DAY
     Route: 037
  2. LIORESAL [Suspect]
     Active Substance: BACLOFEN
     Indication: Cerebral palsy

REACTIONS (3)
  - Muscle spasticity [Unknown]
  - Therapy non-responder [Unknown]
  - Device programming error [Unknown]

NARRATIVE: CASE EVENT DATE: 20171001
